FAERS Safety Report 13980381 (Version 2)
Quarter: 2017Q4

REPORT INFORMATION
  Report Type: Report from Study
  Country: None (occurrence: US)
  Receive Date: 20170918
  Receipt Date: 20171030
  Transmission Date: 20180321
  Serious: Yes (Other)
  Sender: FDA-Public Use
  Company Number: US-ABBVIE-17K-163-2100459-00

PATIENT
  Sex: Male

DRUGS (1)
  1. HUMIRA [Suspect]
     Active Substance: ADALIMUMAB
     Indication: CROHN^S DISEASE
     Route: 058

REACTIONS (5)
  - Drug specific antibody present [Unknown]
  - Acne [Unknown]
  - Drug effect decreased [Unknown]
  - White blood cell count increased [Unknown]
  - Meningioma [Unknown]

NARRATIVE: CASE EVENT DATE: 2009
